FAERS Safety Report 6089708-2 (Version None)
Quarter: 2009Q1

REPORT INFORMATION
  Report Type: 
  Country: None (occurrence: None)
  Receive Date: 20090224
  Receipt Date: 20090217
  Transmission Date: 20090719
  Serious: No
  Sender: FDA-Public Use
  Company Number: US-B.I. PHARMACEUTICALS,INC./RIDGEFIELD-2009-BP-02030BP

PATIENT
  Age: 13 Year
  Sex: Female

DRUGS (1)
  1. ZANTAC 75 [Suspect]
     Indication: GASTRITIS
     Dosage: 150MG
     Route: 048
     Dates: start: 20090216

REACTIONS (3)
  - ABDOMINAL DISCOMFORT [None]
  - ANOREXIA [None]
  - NAUSEA [None]
